FAERS Safety Report 7980174-6 (Version None)
Quarter: 2011Q4

REPORT INFORMATION
  Report Type: 
  Country: None (occurrence: None)
  Receive Date: 20111214
  Receipt Date: 20111207
  Transmission Date: 20120403
  Serious: Yes (Death, Hospitalization, Other)
  Sender: FDA-Public Use
  Company Number: US-ACTELION-A-US2011-52377

PATIENT

DRUGS (1)
  1. TRACLEER [Suspect]
     Indication: PULMONARY ARTERIAL HYPERTENSION
     Dosage: UNK
     Route: 048
     Dates: start: 20100323

REACTIONS (6)
  - DEATH [None]
  - NEOPLASM MALIGNANT [None]
  - GASTRIC CANCER [None]
  - FLUID RETENTION [None]
  - CARDIAC FAILURE CONGESTIVE [None]
  - ULCER HAEMORRHAGE [None]
